FAERS Safety Report 5521460-9 (Version None)
Quarter: 2007Q4

REPORT INFORMATION
  Report Type: 
  Country: None (occurrence: None)
  Receive Date: 20071119
  Receipt Date: 20071107
  Transmission Date: 20080405
  Serious: Yes (Hospitalization, Other)
  Sender: FDA-Public Use
  Company Number: US-PFIZER INC-2007081044

PATIENT
  Sex: Male

DRUGS (18)
  1. LYRICA [Suspect]
     Indication: LUMBAR RADICULOPATHY
     Route: 048
  2. LYRICA [Suspect]
     Indication: PAIN IN EXTREMITY
  3. LIPITOR [Concomitant]
     Route: 048
  4. TAMSULOSIN HCL [Concomitant]
     Route: 048
  5. LOPRESSOR [Concomitant]
     Route: 048
  6. ACETYLSALICYLIC ACID SRT [Concomitant]
     Route: 048
  7. VALSARTAN [Concomitant]
     Route: 048
  8. WARFARIN SODIUM [Concomitant]
     Route: 048
  9. LOPRESSOR [Concomitant]
  10. FLOMAX [Concomitant]
  11. RESTORIL [Concomitant]
  12. NITRO-DUR [Concomitant]
  13. DIOVAN [Concomitant]
  14. LORTAB [Concomitant]
  15. MEPERGAN FORTIS [Concomitant]
  16. VITAMIN CAP [Concomitant]
  17. DARVOCET [Concomitant]
  18. TRICOR [Concomitant]

REACTIONS (8)
  - BRAIN NATRIURETIC PEPTIDE INCREASED [None]
  - BUNDLE BRANCH BLOCK RIGHT [None]
  - CEREBROVASCULAR ACCIDENT [None]
  - DIZZINESS [None]
  - MOVEMENT DISORDER [None]
  - SINUS BRADYCARDIA [None]
  - TREMOR [None]
  - TYPE 2 DIABETES MELLITUS [None]
